FAERS Safety Report 4404616-8 (Version None)
Quarter: 2004Q3

REPORT INFORMATION
  Report Type: 
  Country: None (occurrence: None)
  Receive Date: 20040720
  Receipt Date: 20040712
  Transmission Date: 20050211
  Serious: Yes (Other)
  Sender: FDA-Public Use
  Company Number: 207646

PATIENT
  Age: 5 Year
  Sex: Female
  Weight: 17.6 kg

DRUGS (8)
  1. RITUXAN [Suspect]
     Indication: LYMPHOPROLIFERATIVE DISORDER
     Dosage: 260 MG, 1/WEEK, INTRAVENOUS
     Route: 042
     Dates: start: 20040522, end: 20040610
  2. PREDNISONE [Concomitant]
  3. TACROLIMUS [Concomitant]
  4. BACTRIM [Concomitant]
  5. NORVASC [Concomitant]
  6. ENALAPRIL MALEATE [Concomitant]
  7. ZANTAC [Concomitant]
  8. VITAMIN NOS [Concomitant]

REACTIONS (1)
  - NEUTROPENIA [None]
